FAERS Safety Report 4964557-4 (Version None)
Quarter: 2006Q2

REPORT INFORMATION
  Report Type: 
  Country: None (occurrence: None)
  Receive Date: 20060406
  Receipt Date: 20060331
  Transmission Date: 20061013
  Serious: Yes (Hospitalization)
  Sender: FDA-Public Use
  Company Number: FR-GLAXOSMITHKLINE-B0418922A

PATIENT
  Age: 41 Year
  Sex: Female

DRUGS (5)
  1. ZYBAN [Suspect]
     Route: 048
  2. SORIATANE [Suspect]
     Route: 065
  3. ASPEGIC 1000 [Concomitant]
     Route: 065
  4. FONZYLANE [Concomitant]
     Route: 065
  5. PLAVIX [Concomitant]
     Route: 065

REACTIONS (5)
  - ARTERIAL THROMBOSIS [None]
  - MALAISE [None]
  - OEDEMA PERIPHERAL [None]
  - PAIN IN EXTREMITY [None]
  - PERIPHERAL COLDNESS [None]
